FAERS Safety Report 21103027 (Version 1)
Quarter: 2022Q3

REPORT INFORMATION
  Report Type: Spontaneous
  Country: FR (occurrence: FR)
  Receive Date: 20220720
  Receipt Date: 20220720
  Transmission Date: 20221027
  Serious: Yes (Hospitalization)
  Sender: FDA-Public Use
  Company Number: None

PATIENT
  Age: 19 Year
  Sex: Female

DRUGS (3)
  1. AMOXICILLIN [Suspect]
     Active Substance: AMOXICILLIN
     Indication: Tonsillitis
     Dosage: UNIT DOSE: 3 GM, FREQUENCY TIME : 1 DAY
     Dates: start: 20220518, end: 20220523
  2. AUGMENTIN [Suspect]
     Active Substance: AMOXICILLIN\CLAVULANATE POTASSIUM
     Indication: Product used for unknown indication
     Dosage: UNIT DOSE: 3 GM, FREQUENCY TIME : DAY
     Dates: start: 20220523, end: 20220524
  3. FLAGYL [Suspect]
     Active Substance: METRONIDAZOLE\METRONIDAZOLE HYDROCHLORIDE
     Indication: Tonsillitis
     Dosage: FLAGYL 500 MG, FILM-COATED TABLET, FREQUENCY TIME: 3 DAY, UNIT DOSE: 500 MG
     Dates: start: 20220523, end: 20220524

REACTIONS (1)
  - Rash morbilliform [Unknown]

NARRATIVE: CASE EVENT DATE: 20220525
